FAERS Safety Report 7653147-0 (Version None)
Quarter: 2011Q3

REPORT INFORMATION
  Report Type: 
  Country: None (occurrence: None)
  Receive Date: 20110803
  Receipt Date: 20110725
  Transmission Date: 20111222
  Serious: Yes (Other)
  Sender: FDA-Public Use
  Company Number: US-NOVOPROD-332588

PATIENT

DRUGS (3)
  1. VICTOZA [Suspect]
     Dosage: 1.2 UNK, UNK
     Route: 058
     Dates: start: 20100306, end: 20100307
  2. VICTOZA [Suspect]
     Dosage: 1.8 MG, UNK
     Route: 058
     Dates: start: 20100308, end: 20100608
  3. VICTOZA [Suspect]
     Indication: PRODUCT USED FOR UNKNOWN INDICATION
     Dosage: 0.6 MG, UNK
     Route: 058
     Dates: start: 20100224, end: 20100305

REACTIONS (11)
  - PANCREATITIS [None]
  - LIPASE INCREASED [None]
  - ABDOMINAL DISCOMFORT [None]
  - FEELING HOT [None]
  - WEIGHT DECREASED [None]
  - INSOMNIA [None]
  - COLD SWEAT [None]
  - NAUSEA [None]
  - CONSTIPATION [None]
  - DECREASED APPETITE [None]
  - DRUG INEFFECTIVE [None]
